FAERS Safety Report 8614665-1 (Version None)
Quarter: 2012Q3

REPORT INFORMATION
  Report Type: 
  Country: None (occurrence: None)
  Receive Date: 20120823
  Receipt Date: 20120815
  Transmission Date: 20120928
  Serious: Yes (Other)
  Sender: FDA-Public Use
  Company Number: US-US-EMD SERONO, INC.-7135937

PATIENT
  Sex: Male

DRUGS (2)
  1. REBIF [Suspect]
     Indication: MULTIPLE SCLEROSIS
     Route: 058
     Dates: start: 20120315
  2. TYLENOL [Concomitant]
     Indication: PREMEDICATION

REACTIONS (5)
  - OEDEMA PERIPHERAL [None]
  - SARCOIDOSIS [None]
  - URTICARIA [None]
  - PAIN [None]
  - INJECTION SITE ERYTHEMA [None]
